FAERS Safety Report 6330581-2 (Version None)
Quarter: 2009Q3

REPORT INFORMATION
  Report Type: 
  Country: None (occurrence: None)
  Receive Date: 20090827
  Receipt Date: 20090701
  Transmission Date: 20100115
  Serious: Yes (Hospitalization)
  Sender: FDA-Public Use
  Company Number: HK-ASTRAZENECA-2009AP03221

PATIENT
  Age: 73 Year
  Sex: Female

DRUGS (1)
  1. PULMICORT-100 [Suspect]
     Indication: ASTHMA
     Dosage: 1 TO 2 INHALATIONS EVERY NIGHT
     Route: 055

REACTIONS (1)
  - ASTHMA [None]
